FAERS Safety Report 7220743-4 (Version None)
Quarter: 2011Q1

REPORT INFORMATION
  Report Type: 
  Country: None (occurrence: None)
  Receive Date: 20110111
  Receipt Date: 20110103
  Transmission Date: 20110831
  Serious: Yes (Hospitalization)
  Sender: FDA-Public Use
  Company Number: US-GENENTECH-312158

PATIENT
  Age: 3 Year
  Sex: Female
  Weight: 16.4 kg

DRUGS (1)
  1. PULMOZYME [Suspect]
     Indication: CYSTIC FIBROSIS

REACTIONS (1)
  - LUNG INFECTION [None]
